FAERS Safety Report 16137832 (Version 1)
Quarter: 2019Q2

REPORT INFORMATION
  Report Type: Spontaneous
  Country: US (occurrence: US)
  Receive Date: 20190401
  Receipt Date: 20190401
  Transmission Date: 20190711
  Serious: No
  Sender: FDA-Public Use
  Company Number: US-JNJFOC-20190315535

PATIENT
  Age: 82 Year
  Sex: Female

DRUGS (1)
  1. DITROPAN [Suspect]
     Active Substance: OXYBUTYNIN CHLORIDE
     Indication: INTESTINAL OBSTRUCTION
     Route: 065

REACTIONS (1)
  - Vertigo [Unknown]
